FAERS Safety Report 4533930-0 (Version None)
Quarter: 2004Q4

REPORT INFORMATION
  Report Type: 
  Country: None (occurrence: None)
  Receive Date: 20041210
  Receipt Date: 20041111
  Transmission Date: 20050328
  Serious: No
  Sender: FDA-Public Use
  Company Number: 2004-00796

PATIENT
  Age: 61 Year
  Sex: Female

DRUGS (3)
  1. VELCADE [Suspect]
     Indication: MULTIPLE MYELOMA
     Dosage: 2.00 MG INTRAVENOUS
     Route: 042
  2. THALIDOMIDE(THALIDOMIDE) TABLET [Suspect]
     Indication: MULTIPLE MYELOMA
     Dosage: 100.00 MG , ORAL :  50.00 MG, ORAL : 100.00 MG
     Route: 048
     Dates: start: 20040401, end: 20040901
  3. THALIDOMIDE(THALIDOMIDE) TABLET [Suspect]
     Indication: MULTIPLE MYELOMA
     Dosage: 100.00 MG , ORAL :  50.00 MG, ORAL : 100.00 MG
     Route: 048
     Dates: start: 20040901

REACTIONS (1)
  - DYSPNOEA [None]
